FAERS Safety Report 19969614 (Version 1)
Quarter: 2021Q4

REPORT INFORMATION
  Report Type: Spontaneous
  Country: DE (occurrence: DE)
  Receive Date: 20211019
  Receipt Date: 20211019
  Transmission Date: 20220303
  Serious: Yes (Hospitalization, Other)
  Sender: FDA-Public Use
  Company Number: DE-ADRED-06563-01

PATIENT
  Age: 48 Year
  Sex: Female

DRUGS (2)
  1. IBUPROFEN [Suspect]
     Active Substance: IBUPROFEN
     Indication: Product used for unknown indication
     Dosage: BEI BEDARF, TABLETTEN
     Route: 048
  2. METAMIZOLE [Suspect]
     Active Substance: METAMIZOLE
     Indication: Product used for unknown indication
     Dosage: 500 MG, BEI BEDARF, TABLETTEN
     Route: 048

REACTIONS (10)
  - Hyperhidrosis [Unknown]
  - Peripheral swelling [Unknown]
  - Dry mouth [Unknown]
  - Depressed level of consciousness [Unknown]
  - Hypersensitivity [Unknown]
  - Erythema [Unknown]
  - Loss of consciousness [Unknown]
  - Feeling hot [Unknown]
  - Leukocytosis [Unknown]
  - Pruritus [Unknown]
